FAERS Safety Report 8399438-X (Version None)
Quarter: 2012Q2

REPORT INFORMATION
  Report Type: 
  Country: None (occurrence: None)
  Receive Date: 20120323
  Receipt Date: 20110124
  Transmission Date: 20120825
  Serious: Yes (Hospitalization)
  Sender: FDA-Public Use
  Company Number: 163-21880-11012448

PATIENT
  Age: 76 Year
  Sex: Male
  Weight: 67.13 kg

DRUGS (9)
  1. ASPIRIN [Concomitant]
  2. OMEPRAZOLE [Concomitant]
  3. SPIRONOLACTONE [Concomitant]
  4. REVLIMID [Suspect]
     Indication: MYELOFIBROSIS
     Dosage: 10 MG, 1 IN 1 D, PO
     Route: 048
     Dates: start: 20091201
  5. LASIX [Concomitant]
  6. LYRICA [Concomitant]
  7. ZOFRAN [Concomitant]
  8. ALLOPURINOL [Concomitant]
  9. COLACE (DOCUSATE SODIUM) [Concomitant]

REACTIONS (2)
  - BLOOD CALCIUM DECREASED [None]
  - TOOTH DISORDER [None]
